FAERS Safety Report 8251938-9 (Version None)
Quarter: 2012Q2

REPORT INFORMATION
  Report Type: 
  Country: None (occurrence: None)
  Receive Date: 20120402
  Receipt Date: 20120322
  Transmission Date: 20120825
  Serious: No
  Sender: FDA-Public Use
  Company Number: US-BAYER-2012-029533

PATIENT

DRUGS (2)
  1. ASPIRIN [Suspect]
  2. ALEVE (CAPLET) [Suspect]

REACTIONS (1)
  - DRUG INTOLERANCE [None]
